FAERS Safety Report 6749630-2 (Version None)
Quarter: 2010Q2

REPORT INFORMATION
  Report Type: 
  Country: None (occurrence: None)
  Receive Date: 20100601
  Receipt Date: 20100520
  Transmission Date: 20101027
  Serious: Yes (Hospitalization, Disabling)
  Sender: FDA-Public Use
  Company Number: A0861844A

PATIENT
  Sex: Female
  Weight: 72 kg

DRUGS (10)
  1. ARIXTRA [Suspect]
     Dosage: 7.5MG PER DAY
     Route: 058
  2. METHYLPREDNISOLONE [Concomitant]
  3. INSULINE [Concomitant]
  4. DIURETIC [Concomitant]
  5. VITAMINS [Concomitant]
  6. FOLIC ACID [Concomitant]
  7. NEXIUM [Concomitant]
  8. COLACE [Concomitant]
  9. GASTROINTESTINAL DRUG [Concomitant]
  10. ANTIBIOTICS [Concomitant]
     Route: 042

REACTIONS (3)
  - DEEP VEIN THROMBOSIS [None]
  - OEDEMA PERIPHERAL [None]
  - OVERDOSE [None]
